FAERS Safety Report 9115073 (Version 1)
Quarter: 2013Q1

REPORT INFORMATION
  Report Type: Spontaneous
  Country: AU (occurrence: AU)
  Receive Date: 20130225
  Receipt Date: 20130225
  Transmission Date: 20140127
  Serious: Yes (Hospitalization)
  Sender: FDA-Public Use
  Company Number: PHHY2013AU017415

PATIENT
  Sex: Female

DRUGS (3)
  1. GLIVEC [Suspect]
     Indication: CHRONIC MYELOID LEUKAEMIA
     Dosage: 400 MG, UNK
  2. GLIVEC [Suspect]
     Dosage: 200 MG ONE DAY AND 300 MG ALTERNATE DAYS
     Route: 048
     Dates: start: 20081130
  3. AVAPRO [Concomitant]
     Dosage: UNK UKN, UNK

REACTIONS (2)
  - Colon cancer [Unknown]
  - Second primary malignancy [Unknown]
